FAERS Safety Report 9788768 (Version 1)
Quarter: 2013Q4

REPORT INFORMATION
  Report Type: Spontaneous
  Country: PT (occurrence: PT)
  Receive Date: 20131230
  Receipt Date: 20131230
  Transmission Date: 20140711
  Serious: Yes (Other)
  Sender: FDA-Public Use
  Company Number: PT-BAYER-2013-156096

PATIENT
  Sex: Female

DRUGS (1)
  1. ACETYLSALICYLIC ACID (} 100 MG) [Suspect]

REACTIONS (5)
  - Angioedema [None]
  - Conjunctival hyperaemia [None]
  - Rash pruritic [None]
  - Dyspnoea [None]
  - Drug hypersensitivity [None]
